FAERS Safety Report 8424468-9 (Version None)
Quarter: 2012Q2

REPORT INFORMATION
  Report Type: 
  Country: None (occurrence: None)
  Receive Date: 20120610
  Receipt Date: 20120531
  Transmission Date: 20120825
  Serious: Yes (Other)
  Sender: FDA-Public Use
  Company Number: US-VERTEX PHARMACEUTICALS INC.-AE-2012-005399

PATIENT
  Sex: Female

DRUGS (3)
  1. INCIVEK [Suspect]
     Indication: HEPATITIS C
     Route: 048
     Dates: start: 20110915, end: 20111218
  2. PEGASYS [Concomitant]
     Indication: HEPATITIS C
     Route: 058
     Dates: start: 20110915, end: 20120411
  3. RIBAVIRIN [Concomitant]
     Indication: HEPATITIS C
     Route: 048
     Dates: start: 20110915, end: 20120411

REACTIONS (6)
  - WEIGHT DECREASED [None]
  - ALOPECIA [None]
  - HEPATITIS C RNA INCREASED [None]
  - LIVER DISORDER [None]
  - HEPATIC ENZYME INCREASED [None]
  - RASH [None]
